FAERS Safety Report 8994437 (Version 1)
Quarter: 2012Q4

REPORT INFORMATION
  Report Type: Spontaneous
  Country: US (occurrence: None)
  Receive Date: 20121228
  Receipt Date: 20121228
  Transmission Date: 20130627
  Serious: Yes (Hospitalization)
  Sender: FDA-Public Use
  Company Number: None

PATIENT
  Age: 91 Year
  Sex: Male
  Weight: 78 kg

DRUGS (2)
  1. PIPERACILLIN/TAZOBACTAM [Suspect]
     Indication: UTI
     Route: 042
     Dates: start: 20121121, end: 20121123
  2. CILASTATIN/IMIPENEM [Suspect]
     Indication: UTI
     Route: 042
     Dates: start: 20121123, end: 20121130

REACTIONS (4)
  - Intestinal dilatation [None]
  - Diarrhoea [None]
  - Clostridium test positive [None]
  - Abdominal distension [None]
